FAERS Safety Report 6139494-2 (Version None)
Quarter: 2009Q2

REPORT INFORMATION
  Report Type: 
  Country: None (occurrence: None)
  Receive Date: 20090401
  Receipt Date: 20090327
  Transmission Date: 20091009
  Serious: Yes (Death, Hospitalization)
  Sender: FDA-Public Use
  Company Number: IN-ELI_LILLY_AND_COMPANY-IN200903006902

PATIENT
  Age: 76 Year
  Sex: Male

DRUGS (2)
  1. XIGRIS [Suspect]
     Indication: PNEUMOCOCCAL SEPSIS
     Dosage: UNK, UNKNOWN
     Route: 042
     Dates: start: 20090314, end: 20090318
  2. ANTIBIOTICS [Concomitant]

REACTIONS (1)
  - RENAL FAILURE ACUTE [None]
